FAERS Safety Report 24528973 (Version 1)
Quarter: 2024Q4

REPORT INFORMATION
  Report Type: Spontaneous
  Country: CN (occurrence: CN)
  Receive Date: 20241021
  Receipt Date: 20241021
  Transmission Date: 20250115
  Serious: Yes (Other)
  Sender: NOVARTIS
  Company Number: CN-002147023-NVSC2024CN204073

PATIENT
  Age: 6 Year
  Sex: Female
  Weight: 23 kg

DRUGS (1)
  1. TOBRAMYCIN [Suspect]
     Active Substance: TOBRAMYCIN\TOBRAMYCIN SULFATE
     Indication: Conjunctivitis
     Dosage: 1 DRP, QID
     Route: 047
     Dates: start: 20241006, end: 20241006

REACTIONS (5)
  - Ocular hyperaemia [Recovering/Resolving]
  - Eye pruritus [Unknown]
  - Ocular discomfort [Unknown]
  - Eye swelling [Unknown]
  - Eye allergy [Unknown]

NARRATIVE: CASE EVENT DATE: 20241006
